FAERS Safety Report 9416196 (Version 1)
Quarter: 2013Q3

REPORT INFORMATION
  Report Type: Spontaneous
  Country: US (occurrence: None)
  Receive Date: 20130723
  Receipt Date: 20130723
  Transmission Date: 20140515
  Serious: Yes (Hospitalization, Disabling)
  Sender: FDA-Public Use
  Company Number: None

PATIENT
  Age: 51 Year
  Sex: Female
  Weight: 84.4 kg

DRUGS (1)
  1. NOREPINEPHRINE [Suspect]
     Indication: HYPOTENSION
     Dosage: 1 MCG/KG/MIN, CONTINOUS?
     Route: 041
     Dates: start: 20130310, end: 20130312

REACTIONS (2)
  - Necrosis ischaemic [None]
  - Toe amputation [None]
